FAERS Safety Report 5273850-X (Version None)
Quarter: 2007Q1

REPORT INFORMATION
  Report Type: 
  Country: None (occurrence: None)
  Receive Date: 20070323
  Receipt Date: 20051117
  Transmission Date: 20070707
  Serious: Yes (Death)
  Sender: FDA-Public Use
  Company Number: SE-ROCHE-425171

PATIENT
  Age: 60 Year
  Sex: Male

DRUGS (8)
  1. CYMEVENE [Suspect]
     Indication: DRUG USE FOR UNKNOWN INDICATION
     Route: 042
     Dates: start: 20000211, end: 20000215
  2. SANDIMMUNE [Concomitant]
     Dates: start: 20000115
  3. CELLCEPT [Concomitant]
     Dates: start: 20000115
  4. CIPROFLOXACIN HYDROCHLORIDE [Concomitant]
     Dates: start: 20000115
  5. FLAGYL [Concomitant]
     Dates: start: 20000115
  6. FUNGILIN [Concomitant]
     Dates: start: 20000115
  7. MYCOSTATIN [Concomitant]
     Dates: start: 20000115
  8. WARAN [Concomitant]

REACTIONS (3)
  - CONFUSIONAL STATE [None]
  - HEPATIC FAILURE [None]
  - RENAL FAILURE [None]
